FAERS Safety Report 9859693 (Version 1)
Quarter: 2014Q1

REPORT INFORMATION
  Report Type: Spontaneous
  Country: FR (occurrence: FR)
  Receive Date: 20140131
  Receipt Date: 20140131
  Transmission Date: 20141002
  Serious: Yes (Hospitalization)
  Sender: FDA-Public Use
  Company Number: FR-GLAXOSMITHKLINE-B0963054A

PATIENT
  Age: 62 Year
  Sex: Female

DRUGS (3)
  1. ZELITREX [Suspect]
     Indication: PRODUCT USED FOR UNKNOWN INDICATION
     Route: 048
     Dates: start: 2013, end: 20131017
  2. LEVOTHYROX [Concomitant]
     Indication: THYROIDECTOMY
     Route: 048
  3. CHEMOTHERAPY [Concomitant]
     Dates: start: 201205, end: 20130929

REACTIONS (2)
  - Leukopenia [Recovered/Resolved]
  - Neutropenia [Recovered/Resolved]
